FAERS Safety Report 7134060-4 (Version None)
Quarter: 2010Q4

REPORT INFORMATION
  Report Type: 
  Country: None (occurrence: None)
  Receive Date: 20101203
  Receipt Date: 20101129
  Transmission Date: 20110411
  Serious: Yes (Hospitalization, Other)
  Sender: FDA-Public Use
  Company Number: CA-BRISTOL-MYERS SQUIBB COMPANY-15191737

PATIENT
  Age: 67 Year
  Sex: Female

DRUGS (7)
  1. ORENCIA [Suspect]
     Indication: RHEUMATOID ARTHRITIS
     Dosage: LAST DOSE ON 15JUN10,06AUG10,09-NOV-2010 NO OF INF:10
     Route: 042
     Dates: start: 20100419
  2. FOSAMAX [Concomitant]
  3. MICARDIS [Concomitant]
  4. AMITRIPTYLINE [Concomitant]
  5. RANITIDINE [Concomitant]
  6. TYLENOL (CAPLET) [Concomitant]
  7. SYMBICORT [Concomitant]

REACTIONS (4)
  - BLOOD PRESSURE DECREASED [None]
  - DYSARTHRIA [None]
  - SPEECH DISORDER [None]
  - TRANSIENT GLOBAL AMNESIA [None]
